FAERS Safety Report 5155583-3 (Version None)
Quarter: 2006Q4

REPORT INFORMATION
  Report Type: 
  Country: None (occurrence: None)
  Receive Date: 20061113
  Receipt Date: 20061027
  Transmission Date: 20070319
  Serious: Yes (Hospitalization)
  Sender: FDA-Public Use
  Company Number: 2006BI014691

PATIENT
  Age: 58 Year
  Sex: Female

DRUGS (2)
  1. AVONEX [Suspect]
     Indication: MULTIPLE SCLEROSIS
     Dosage: 30 UG; QW; IM
     Route: 030
     Dates: start: 20040601
  2. AVONEX [Suspect]

REACTIONS (3)
  - NEPHRECTOMY [None]
  - RECTAL HAEMORRHAGE [None]
  - RENAL CELL CARCINOMA STAGE UNSPECIFIED [None]
